FAERS Safety Report 7820672-9 (Version None)
Quarter: 2011Q4

REPORT INFORMATION
  Report Type: 
  Country: None (occurrence: None)
  Receive Date: 20111018
  Receipt Date: 20111012
  Transmission Date: 20120403
  Serious: Yes (Other)
  Sender: FDA-Public Use
  Company Number: JP-BAXTER-2011BH023176

PATIENT
  Age: 61 Year
  Sex: Female

DRUGS (35)
  1. CYCLOPHOSPHAMIDE [Suspect]
     Indication: BREAST CANCER
     Route: 065
     Dates: start: 20110120, end: 20110120
  2. OXYCONTIN [Concomitant]
     Indication: CANCER PAIN
     Route: 048
     Dates: start: 20110206, end: 20110206
  3. OXINORM [Concomitant]
     Route: 048
     Dates: start: 20110211, end: 20110503
  4. GRAN [Concomitant]
     Indication: LEUKOPENIA
     Route: 065
     Dates: start: 20110414, end: 20110427
  5. FERROUS CITRATE [Concomitant]
     Indication: PRODUCT USED FOR UNKNOWN INDICATION
     Route: 048
     Dates: start: 20110314, end: 20110314
  6. OXYCONTIN [Concomitant]
     Route: 048
     Dates: start: 20110207, end: 20110210
  7. OXYCONTIN [Concomitant]
     Route: 048
     Dates: start: 20110302, end: 20110415
  8. OXYCONTIN [Concomitant]
     Route: 048
     Dates: start: 20110211, end: 20110220
  9. CANDESARTAN CILEXETIL [Concomitant]
     Indication: PRODUCT USED FOR UNKNOWN INDICATION
     Route: 048
     Dates: start: 20110208
  10. VOLTAREN [Concomitant]
     Indication: CANCER PAIN
     Route: 048
     Dates: start: 20110207
  11. NEUTROGIN [Concomitant]
     Indication: BREAST CANCER
     Route: 065
     Dates: start: 20110127, end: 20110202
  12. LANSOPRAZOLE [Concomitant]
     Indication: PRODUCT USED FOR UNKNOWN INDICATION
     Route: 048
     Dates: start: 20110318
  13. DEXAMETHASONE [Concomitant]
     Indication: BREAST CANCER
     Route: 048
     Dates: start: 20110407
  14. OXYCONTIN [Concomitant]
     Route: 048
     Dates: start: 20110221, end: 20110301
  15. OXYCONTIN [Concomitant]
     Route: 048
     Dates: start: 20110430
  16. OXINORM [Concomitant]
     Indication: CANCER PAIN
     Route: 048
     Dates: start: 20110206, end: 20110210
  17. LOXONIN [Concomitant]
     Indication: CANCER PAIN
     Route: 048
     Dates: end: 20110206
  18. MAGNESIUM OXIDE [Concomitant]
     Indication: PRODUCT USED FOR UNKNOWN INDICATION
     Route: 048
  19. OXYCONTIN [Concomitant]
     Route: 048
     Dates: start: 20110416, end: 20110429
  20. MUCOSTA [Concomitant]
     Indication: PRODUCT USED FOR UNKNOWN INDICATION
     Route: 048
  21. PREGABALIN [Concomitant]
     Indication: CANCER PAIN
     Route: 048
     Dates: start: 20110223, end: 20110223
  22. EPIRUBICIN HYDROCHLORIDE [Suspect]
     Indication: BREAST CANCER
     Route: 065
     Dates: start: 20110120, end: 20110120
  23. PACLITAXEL [Suspect]
     Indication: PRODUCT USED FOR UNKNOWN INDICATION
     Route: 065
  24. LENDORMIN [Concomitant]
     Indication: PRODUCT USED FOR UNKNOWN INDICATION
     Route: 048
  25. AMLODIPINE BESYLATE [Concomitant]
     Indication: PRODUCT USED FOR UNKNOWN INDICATION
     Route: 065
     Dates: start: 20110212
  26. ADJUST-A [Concomitant]
     Indication: PRODUCT USED FOR UNKNOWN INDICATION
     Route: 048
  27. ZOMETA [Concomitant]
     Indication: BREAST CANCER
     Route: 065
     Dates: start: 20110217, end: 20110217
  28. HUMULIN R [Concomitant]
     Indication: PRODUCT USED FOR UNKNOWN INDICATION
     Route: 065
     Dates: start: 20110209
  29. CALCIUM POLYSTYRENE SULFONATE [Concomitant]
     Indication: PRODUCT USED FOR UNKNOWN INDICATION
     Route: 048
     Dates: start: 20110221
  30. LEVOFLOXACIN [Concomitant]
     Indication: RESPIRATORY TRACT INFECTION
     Route: 048
     Dates: start: 20110303, end: 20110303
  31. FEMARA [Concomitant]
     Indication: BREAST CANCER
     Route: 048
     Dates: start: 20110324
  32. FLUOROURACIL [Suspect]
     Indication: BREAST CANCER
     Route: 065
     Dates: start: 20110120, end: 20110120
  33. CALCIUM CARBONATE [Concomitant]
     Indication: PRODUCT USED FOR UNKNOWN INDICATION
     Route: 065
     Dates: start: 20110221, end: 20110221
  34. CEFTAZIDIME SODIUM [Concomitant]
     Indication: SEPSIS
     Route: 065
     Dates: start: 20110414, end: 20110419
  35. DEXTROMETHORPHAN HYDROBROMIDE [Concomitant]
     Indication: PRODUCT USED FOR UNKNOWN INDICATION
     Route: 048
     Dates: start: 20110216

REACTIONS (3)
  - RESPIRATORY TRACT INFECTION [None]
  - LEUKOPENIA [None]
  - SEPSIS [None]
